FAERS Safety Report 9765885 (Version 2)
Quarter: 2013Q4

REPORT INFORMATION
  Report Type: Spontaneous
  Country: US (occurrence: US)
  Receive Date: 20131217
  Receipt Date: 20131224
  Transmission Date: 20140711
  Serious: No
  Sender: FDA-Public Use
  Company Number: US-BIOGENIDEC-2013BI116617

PATIENT
  Sex: Female

DRUGS (8)
  1. TECFIDERA [Suspect]
     Indication: MULTIPLE SCLEROSIS
     Route: 048
     Dates: start: 20130529, end: 20131213
  2. 5-HTP [Concomitant]
  3. BACLOFEN [Concomitant]
  4. BENADRYL [Concomitant]
  5. CALCIUM+D [Concomitant]
  6. CALCIUM CARBONATE [Concomitant]
  7. FLAXSEED OIL [Concomitant]
  8. GLUCOSAMINE HCL [Concomitant]

REACTIONS (1)
  - Muscular weakness [Not Recovered/Not Resolved]
